FAERS Safety Report 7592409-2 (Version None)
Quarter: 2011Q3

REPORT INFORMATION
  Report Type: 
  Country: None (occurrence: None)
  Receive Date: 20110706
  Receipt Date: 20110622
  Transmission Date: 20111222
  Serious: Yes (Hospitalization)
  Sender: FDA-Public Use
  Company Number: DE-AMGEN-US383038

PATIENT
  Age: 50 Year
  Sex: Female
  Weight: 72 kg

DRUGS (6)
  1. METHOTREXATE SODIUM [Suspect]
     Indication: RHEUMATOID ARTHRITIS
     Dosage: 20 MG, QD
     Route: 058
     Dates: start: 19990101
  2. ENBREL [Suspect]
     Indication: RHEUMATOID ARTHRITIS
     Dosage: 50 MG, QWK
     Route: 058
     Dates: start: 20071201, end: 20091101
  3. FUROSEMIDE [Concomitant]
     Dosage: UNK UNK, UNK
     Route: 065
  4. OMEPRAZOLE [Concomitant]
     Dosage: UNK UNK, UNK
     Route: 065
  5. PREDNISONE [Suspect]
     Dosage: 7.5 MG, QD
     Route: 048
     Dates: start: 20010101
  6. ENBREL [Suspect]
     Dosage: 50 MG, QWK
     Route: 058
     Dates: start: 20091201

REACTIONS (1)
  - RHEUMATOID ARTHRITIS [None]
